FAERS Safety Report 17131034 (Version 1)
Quarter: 2019Q4

REPORT INFORMATION
  Report Type: Spontaneous
  Country: CN (occurrence: CN)
  Receive Date: 20191209
  Receipt Date: 20191209
  Transmission Date: 20200122
  Serious: Yes (Hospitalization, Other)
  Sender: FDA-Public Use
  Company Number: CN-009507513-1912CHN000460

PATIENT
  Age: 77 Year
  Sex: Female
  Weight: 70 kg

DRUGS (2)
  1. TIENAM [Suspect]
     Active Substance: CILASTATIN SODIUM\IMIPENEM
     Indication: ANTI-INFECTIVE THERAPY
     Dosage: 2 GRAM, BID
     Route: 041
     Dates: start: 20191120, end: 20191123
  2. TIENAM [Suspect]
     Active Substance: CILASTATIN SODIUM\IMIPENEM
     Dosage: 2 GRAM, TID
     Route: 041
     Dates: start: 20191122, end: 2019

REACTIONS (5)
  - Dizziness [Recovering/Resolving]
  - Dysphoria [Recovering/Resolving]
  - Mental disorder [Recovered/Resolved]
  - Psychomotor hyperactivity [Recovering/Resolving]
  - Pyrexia [Recovered/Resolved]

NARRATIVE: CASE EVENT DATE: 20191120
